FAERS Safety Report 5330604-3 (Version None)
Quarter: 2007Q2

REPORT INFORMATION
  Report Type: 
  Country: None (occurrence: None)
  Receive Date: 20070516
  Receipt Date: 20070503
  Transmission Date: 20071010
  Serious: Yes (Other)
  Sender: FDA-Public Use
  Company Number: RENA-12189

PATIENT
  Sex: Female

DRUGS (1)
  1. RENAGEL [Suspect]
     Indication: HYPERPHOSPHATAEMIA
     Dates: start: 20070404

REACTIONS (5)
  - DIALYSIS [None]
  - OVARIAN CANCER METASTATIC [None]
  - PELVIC NEOPLASM [None]
  - POST PROCEDURAL COMPLICATION [None]
  - PRURITUS [None]
